FAERS Safety Report 10255736 (Version 1)
Quarter: 2014Q2

REPORT INFORMATION
  Report Type: Spontaneous
  Country: CA (occurrence: CA)
  Receive Date: 20140624
  Receipt Date: 20140624
  Transmission Date: 20141212
  Serious: Yes (Other)
  Sender: FDA-Public Use
  Company Number: CA-TEVA-489994USA

PATIENT
  Age: 12 Year
  Sex: Male
  Weight: 34.96 kg

DRUGS (7)
  1. IRINOTECAN [Suspect]
     Indication: PRODUCT USED FOR UNKNOWN INDICATION
     Route: 042
  2. GRANISETRON [Suspect]
     Route: 042
  3. DIMENHYDRINATE [Concomitant]
  4. MAGNESIUM [Concomitant]
  5. SULFAMETHOXAZOLE AND TRIMETHOPRIM [Concomitant]
  6. SUPRAX [Concomitant]
  7. TEMOZOLOMIDE [Concomitant]

REACTIONS (3)
  - Agitation [Recovered/Resolved]
  - Chest pain [Recovered/Resolved]
  - Dyspnoea [Recovered/Resolved]
